FAERS Safety Report 15965808 (Version 2)
Quarter: 2019Q1

REPORT INFORMATION
  Report Type: Spontaneous
  Country: US (occurrence: US)
  Receive Date: 20190215
  Receipt Date: 20190219
  Transmission Date: 20190418
  Serious: No
  Sender: FDA-Public Use
  Company Number: US-PFIZER INC-2019058199

PATIENT
  Sex: Female

DRUGS (1)
  1. LIOTHYRONINE SODIUM. [Suspect]
     Active Substance: LIOTHYRONINE SODIUM
     Dosage: 50 UG, UNK

REACTIONS (6)
  - Alopecia [Unknown]
  - Fatigue [Unknown]
  - Weight increased [Unknown]
  - Hypersomnia [Unknown]
  - Sluggishness [Unknown]
  - Drug effect incomplete [Unknown]
